FAERS Safety Report 5001539-0 (Version None)
Quarter: 2006Q2

REPORT INFORMATION
  Report Type: 
  Country: None (occurrence: None)
  Receive Date: 20060510
  Receipt Date: 20060426
  Transmission Date: 20061013
  Serious: Yes (Life-Threatening, Hospitalization)
  Sender: FDA-Public Use
  Company Number: 2006042157

PATIENT
  Age: 51 Year
  Sex: Female
  Weight: 69 kg

DRUGS (5)
  1. SUTENT [Suspect]
     Indication: RENAL CELL CARCINOMA STAGE UNSPECIFIED
     Dosage: SEE IMAGE
     Route: 048
     Dates: start: 20051124
  2. SUTENT [Suspect]
     Indication: RENAL CELL CARCINOMA STAGE UNSPECIFIED
     Dosage: SEE IMAGE
     Route: 048
     Dates: start: 20060426
  3. DEXAMETHASONE [Concomitant]
  4. AMLODIPINE [Concomitant]
  5. FAMOTIDINE [Concomitant]

REACTIONS (4)
  - CATHETER RELATED INFECTION [None]
  - DEHYDRATION [None]
  - ILEUS PARALYTIC [None]
  - PHARYNGITIS [None]
